FAERS Safety Report 10281854 (Version 1)
Quarter: 2014Q3

REPORT INFORMATION
  Report Type: Spontaneous
  Country: RU (occurrence: RU)
  Receive Date: 20140707
  Receipt Date: 20140707
  Transmission Date: 20150326
  Serious: Yes (Death, Hospitalization)
  Sender: FDA-Public Use
  Company Number: RU-SA-2014SA084074

PATIENT
  Age: 63 Year
  Sex: Female

DRUGS (2)
  1. HEPARIN [Suspect]
     Active Substance: HEPARIN SODIUM
     Indication: PULMONARY EMBOLISM
     Dosage: SOLUTION
     Route: 042
     Dates: start: 20140618, end: 20140618
  2. CLEXANE [Suspect]
     Active Substance: ENOXAPARIN SODIUM
     Indication: PREOPERATIVE CARE
     Route: 058
     Dates: start: 20140616, end: 20140617

REACTIONS (4)
  - Underdose [Unknown]
  - Acute myocardial infarction [Fatal]
  - Drug ineffective [Unknown]
  - Pulmonary embolism [Fatal]

NARRATIVE: CASE EVENT DATE: 20140618
